FAERS Safety Report 5983530-0 (Version None)
Quarter: 2008Q4

REPORT INFORMATION
  Report Type: 
  Country: None (occurrence: None)
  Receive Date: 20081205
  Receipt Date: 20081205
  Transmission Date: 20090506
  Serious: Yes (Other)
  Sender: FDA-Public Use
  Company Number: None

PATIENT
  Age: 32 Year
  Sex: Female
  Weight: 78.6537 kg

DRUGS (6)
  1. SINGULAIR [Suspect]
     Indication: ASTHMA
     Dosage: 10MG 1 TIME DAILY PO
     Route: 048
     Dates: start: 20040216, end: 20081125
  2. ALBUTEROL [Concomitant]
  3. CALTRATE + D [Concomitant]
  4. FEXOFENADINE [Concomitant]
  5. FLOVENT HFA [Concomitant]
  6. VITAMIN D [Concomitant]

REACTIONS (1)
  - MOOD SWINGS [None]
